FAERS Safety Report 5426305-3 (Version None)
Quarter: 2007Q3

REPORT INFORMATION
  Report Type: 
  Country: None (occurrence: None)
  Receive Date: 20070827
  Receipt Date: 20070815
  Transmission Date: 20080115
  Serious: Yes (Hospitalization)
  Sender: FDA-Public Use
  Company Number: DE-ROCHE-511744

PATIENT
  Age: 53 Year
  Sex: Female
  Weight: 68 kg

DRUGS (1)
  1. CAPECITABINE [Suspect]
     Dosage: AS PER PROTOCOL: TO BE TAKEN 30 MIN. AFTER A MEAL, DIVIDED UP INTO 2 INDIVIDUAL DOSES, 2 WEEKS OF T+
     Route: 048
     Dates: start: 20070418

REACTIONS (1)
  - CHOLANGITIS [None]
